FAERS Safety Report 16865696 (Version 4)
Quarter: 2019Q4

REPORT INFORMATION
  Report Type: Spontaneous
  Country: US (occurrence: US)
  Receive Date: 20190930
  Receipt Date: 20191210
  Transmission Date: 20200122
  Serious: Yes (Other)
  Sender: FDA-Public Use
  Company Number: US-AMGEN-USASP2019157980

PATIENT
  Age: 74 Year
  Sex: Male
  Weight: 98.5 kg

DRUGS (3)
  1. NEULASTA [Suspect]
     Active Substance: PEGFILGRASTIM
     Indication: PROPHYLAXIS
     Dosage: 6 MILLIGRAM
     Route: 058
  2. AVASTIN [Suspect]
     Active Substance: BEVACIZUMAB
     Indication: COLORECTAL CANCER
     Dosage: UNK
     Route: 042
  3. XELODA [Suspect]
     Active Substance: CAPECITABINE
     Indication: COLORECTAL CANCER
     Dosage: 2 GRAM, BID (7 DAYS ON, 7 DAYS OFF)
     Route: 048

REACTIONS (1)
  - Myelodysplastic syndrome [Recovering/Resolving]

NARRATIVE: CASE EVENT DATE: 201909
